FAERS Safety Report 6613093-8 (Version None)
Quarter: 2010Q1

REPORT INFORMATION
  Report Type: 
  Country: None (occurrence: None)
  Receive Date: 20100223
  Receipt Date: 20100203
  Transmission Date: 20100710
  Serious: Yes (Death, Hospitalization)
  Sender: FDA-Public Use
  Company Number: IPC201002-000002

PATIENT
  Age: 87 Year
  Sex: Male
  Weight: 39 kg

DRUGS (2)
  1. FUROSEMIDE [Suspect]
  2. DIGOXIN [Suspect]

REACTIONS (25)
  - ALTERED STATE OF CONSCIOUSNESS [None]
  - ANAEMIA [None]
  - ARTERIOSCLEROSIS CORONARY ARTERY [None]
  - BLOOD POTASSIUM DECREASED [None]
  - BLOOD SODIUM INCREASED [None]
  - BRADYCARDIA [None]
  - BRONCHITIS [None]
  - CEREBRAL ATROPHY [None]
  - CEREBROSCLEROSIS [None]
  - CONFUSIONAL STATE [None]
  - CONVULSION [None]
  - CORONARY ARTERY STENOSIS [None]
  - CYSTITIS HAEMORRHAGIC [None]
  - DEHYDRATION [None]
  - DILATATION VENTRICULAR [None]
  - HYPOPHAGIA [None]
  - HYPOPROTEINAEMIA [None]
  - HYPOTENSION [None]
  - MALNUTRITION [None]
  - NEPHROSCLEROSIS [None]
  - OSMOTIC DEMYELINATION SYNDROME [None]
  - PYREXIA [None]
  - RENAL FAILURE [None]
  - THERAPEUTIC AGENT TOXICITY [None]
  - VOMITING [None]
